FAERS Safety Report 22259838 (Version 3)
Quarter: 2023Q2

REPORT INFORMATION
  Report Type: Report from Study
  Country: CA (occurrence: CA)
  Receive Date: 20230427
  Receipt Date: 20230529
  Transmission Date: 20230722
  Serious: Yes (Hospitalization)
  Sender: FDA-Public Use
  Company Number: CA-TAKEDA-2023TUS037740

PATIENT
  Age: 34 Year
  Sex: Male

DRUGS (3)
  1. VEDOLIZUMAB [Suspect]
     Active Substance: VEDOLIZUMAB
     Indication: Crohn^s disease
     Dosage: 300 MILLIGRAM
     Route: 042
     Dates: start: 20190129, end: 20230222
  2. Salofalk [Concomitant]
     Indication: Crohn^s disease
     Dosage: UNK
  3. AZATHIOPRINE [Concomitant]
     Active Substance: AZATHIOPRINE
     Dosage: UNK

REACTIONS (5)
  - Hospitalisation [Unknown]
  - Peripheral arterial occlusive disease [Unknown]
  - Fistula [Unknown]
  - Diarrhoea [Unknown]
  - Anal fissure [Unknown]
